FAERS Safety Report 24252857 (Version 1)
Quarter: 2024Q3

REPORT INFORMATION
  Report Type: Spontaneous
  Country: ZA (occurrence: None)
  Receive Date: 20240827
  Receipt Date: 20240827
  Transmission Date: 20241016
  Serious: Yes (Hospitalization)
  Sender: ASTRAZENECA
  Company Number: 2024A188752

PATIENT
  Age: 10 Year
  Sex: Male

DRUGS (9)
  1. BUDESONIDE\FORMOTEROL [Suspect]
     Active Substance: BUDESONIDE\FORMOTEROL
     Indication: Asthma
     Dosage: 4.5 MG UNKNOWN UNKNOWN
     Route: 055
  2. CLARITHROMYCIN [Concomitant]
     Active Substance: CLARITHROMYCIN
     Route: 048
  3. ZILFONE [Concomitant]
     Indication: Hypersensitivity
     Route: 045
  4. ALLERMINE [Concomitant]
     Indication: Hypersensitivity
     Route: 048
  5. CEFPODOXIME PROXETIL [Concomitant]
     Active Substance: CEFPODOXIME PROXETIL
     Route: 048
  6. PREDNISONE [Concomitant]
     Active Substance: PREDNISONE
     Route: 048
  7. OTRIVIN METERED ADULT [Concomitant]
     Route: 045
  8. BUDESONIDE [Concomitant]
     Active Substance: BUDESONIDE
     Indication: Rhinitis allergic
     Route: 055
  9. LEVALBUTEROL HYDROCHLORIDE [Concomitant]
     Active Substance: LEVALBUTEROL HYDROCHLORIDE
     Indication: Asthma
     Route: 055

REACTIONS (4)
  - Epilepsy [Unknown]
  - Meningitis [Unknown]
  - Syncope [Unknown]
  - Dyspnoea [Unknown]
